FAERS Safety Report 18000693 (Version 2)
Quarter: 2021Q1

REPORT INFORMATION
  Report Type: Spontaneous
  Country: US (occurrence: US)
  Receive Date: 20200709
  Receipt Date: 20210226
  Transmission Date: 20210419
  Serious: No
  Sender: FDA-Public Use
  Company Number: US-SA-2020SA174328

PATIENT
  Age: 68 Year
  Sex: Female

DRUGS (1)
  1. DUPIXENT [Suspect]
     Active Substance: DUPILUMAB
     Indication: ASTHMA
     Dosage: 300 MG, QOW
     Route: 058

REACTIONS (10)
  - Fatigue [Unknown]
  - Eye disorder [Unknown]
  - Muscular weakness [Unknown]
  - Breast pain [Unknown]
  - Wheezing [Unknown]
  - Arthralgia [Unknown]
  - Product use issue [Unknown]
  - Cardiac operation [Unknown]
  - Asthenia [Unknown]
  - Asthma [Unknown]

NARRATIVE: CASE EVENT DATE: 2021
